FAERS Safety Report 15419660 (Version 7)
Quarter: 2019Q3

REPORT INFORMATION
  Report Type: Spontaneous
  Country: US (occurrence: US)
  Receive Date: 20180924
  Receipt Date: 20190923
  Transmission Date: 20191004
  Serious: Yes (Hospitalization, Other)
  Sender: FDA-Public Use
  Company Number: US-LEXICON PHARMACEUTICALS, INC-18-1606-01161

PATIENT
  Age: 77 Year
  Sex: Male

DRUGS (32)
  1. FLUTICASONE PROP [Concomitant]
     Active Substance: FLUTICASONE PROPIONATE
  2. IRON [Concomitant]
     Active Substance: IRON
  3. ISOSORBIDE MONONITRATE. [Concomitant]
     Active Substance: ISOSORBIDE MONONITRATE
  4. PARICALCITOL. [Concomitant]
     Active Substance: PARICALCITOL
  5. TYLENOL [Concomitant]
     Active Substance: ACETAMINOPHEN
  6. LANREOTIDE [Concomitant]
     Active Substance: LANREOTIDE
     Dates: start: 20160520
  7. NIASPAN [Concomitant]
     Active Substance: NIACIN
  8. TELOTRISTAT ETHYL [Suspect]
     Active Substance: TELOTRISTAT ETHYL
     Indication: CARCINOID SYNDROME
     Route: 048
     Dates: start: 20171003, end: 20190801
  9. CETIRIZINE [Concomitant]
     Active Substance: CETIRIZINE HYDROCHLORIDE
  10. COMBIVENT RESPIMAT [Concomitant]
     Active Substance: ALBUTEROL SULFATE\IPRATROPIUM BROMIDE
  11. LOSARTAN. [Concomitant]
     Active Substance: LOSARTAN
  12. SIMVASTATIN. [Concomitant]
     Active Substance: SIMVASTATIN
  13. VITAMIN B12 [Concomitant]
     Active Substance: CYANOCOBALAMIN
  14. VITAMIN C [Concomitant]
     Active Substance: ASCORBIC ACID
  15. ASCRIPTIN [Concomitant]
     Active Substance: ASPIRIN
  16. BIOTIN [Concomitant]
     Active Substance: BIOTIN
  17. DIPHENHYDRAM [Concomitant]
  18. FOLIC ACID. [Concomitant]
     Active Substance: FOLIC ACID
  19. HYDROCODONE BITARTRATE. [Concomitant]
     Active Substance: HYDROCODONE BITARTRATE
  20. INSULIN CARTRIDGE [Concomitant]
  21. VITAMIN D3 [Concomitant]
     Active Substance: CHOLECALCIFEROL
  22. TELOTRISTAT ETHYL [Suspect]
     Active Substance: TELOTRISTAT ETHYL
     Route: 048
     Dates: start: 2019
  23. NITROSTAT [Concomitant]
     Active Substance: NITROGLYCERIN
  24. TELOTRISTAT ETHYL [Suspect]
     Active Substance: TELOTRISTAT ETHYL
     Route: 048
     Dates: start: 20190525
  25. BUMETANIDE. [Concomitant]
     Active Substance: BUMETANIDE
  26. TELOTRISTAT ETHYL [Suspect]
     Active Substance: TELOTRISTAT ETHYL
     Route: 048
     Dates: start: 20190819
  27. JANUVIA [Concomitant]
     Active Substance: SITAGLIPTIN PHOSPHATE
  28. KLOR-CON [Concomitant]
     Active Substance: POTASSIUM CHLORIDE
  29. METOPROLOL TARTRATE. [Concomitant]
     Active Substance: METOPROLOL TARTRATE
  30. DONEPEZIL. [Concomitant]
     Active Substance: DONEPEZIL
  31. CALCIUM [Concomitant]
     Active Substance: CALCIUM
  32. FISH OIL [Concomitant]
     Active Substance: FISH OIL

REACTIONS (14)
  - Fall [Unknown]
  - Malaise [Unknown]
  - Ligament sprain [Unknown]
  - Urinary tract infection [Unknown]
  - Dialysis [Not Recovered/Not Resolved]
  - Off label use [Not Recovered/Not Resolved]
  - Asthenia [Unknown]
  - Weight decreased [Not Recovered/Not Resolved]
  - Blood potassium increased [Recovered/Resolved]
  - Musculoskeletal pain [Not Recovered/Not Resolved]
  - Oedema peripheral [Not Recovered/Not Resolved]
  - Furuncle [Not Recovered/Not Resolved]
  - Haemoglobin decreased [Not Recovered/Not Resolved]
  - Dyspnoea [Unknown]

NARRATIVE: CASE EVENT DATE: 20171003
